FAERS Safety Report 4360347-4 (Version None)
Quarter: 2004Q2

REPORT INFORMATION
  Report Type: 
  Country: None (occurrence: None)
  Receive Date: 20040514
  Receipt Date: 20040504
  Transmission Date: 20050107
  Serious: Yes (Other)
  Sender: FDA-Public Use
  Company Number: US-JNJFOC-20040501287

PATIENT
  Age: 53 Year
  Sex: Male

DRUGS (1)
  1. LEVOFLOXACIN [Suspect]
     Indication: PROSTATE INFECTION

REACTIONS (10)
  - ARTHRALGIA [None]
  - DIFFICULTY IN WALKING [None]
  - FATIGUE [None]
  - HYPOAESTHESIA [None]
  - MUSCLE CRAMP [None]
  - NERVE INJURY [None]
  - PAIN [None]
  - PARAESTHESIA [None]
  - TENDON DISORDER [None]
  - TREMOR [None]
